FAERS Safety Report 21624368 (Version 1)
Quarter: 2022Q4

REPORT INFORMATION
  Report Type: Spontaneous
  Country: US (occurrence: US)
  Receive Date: 20221121
  Receipt Date: 20221121
  Transmission Date: 20230113
  Serious: No
  Sender: FDA-Public Use
  Company Number: US-BRACCO-2022US01806

PATIENT
  Age: 62 Year
  Sex: Male

DRUGS (3)
  1. LUMASON [Suspect]
     Active Substance: SULFUR HEXAFLUORIDE
     Indication: Echocardiogram
     Dosage: 5 ML, SINGLE
     Route: 042
     Dates: start: 20220510, end: 20220510
  2. LUMASON [Suspect]
     Active Substance: SULFUR HEXAFLUORIDE
     Indication: Echocardiogram
     Dosage: 5 ML, SINGLE
     Route: 042
     Dates: start: 20220510, end: 20220510
  3. LUMASON [Suspect]
     Active Substance: SULFUR HEXAFLUORIDE
     Indication: Echocardiogram
     Dosage: 5 ML, SINGLE
     Route: 042
     Dates: start: 20220510, end: 20220510

REACTIONS (3)
  - Dyspnoea [Unknown]
  - Hyperhidrosis [Unknown]
  - Chest pain [Unknown]

NARRATIVE: CASE EVENT DATE: 20220510
